FAERS Safety Report 8117791-9 (Version None)
Quarter: 2012Q1

REPORT INFORMATION
  Report Type: 
  Country: None (occurrence: None)
  Receive Date: 20120131
  Receipt Date: 20100728
  Transmission Date: 20120608
  Serious: Yes (Hospitalization)
  Sender: FDA-Public Use
  Company Number: 2009011419

PATIENT
  Age: 10 Year
  Sex: Female

DRUGS (2)
  1. PHENOXYMETHYLPENICILLIN [Suspect]
     Indication: TONSILLITIS
     Dosage: 1000 MG (250 MG,4 IN 1 D)
  2. ERYMAX [Suspect]
     Indication: TONSILLITIS
     Dosage: 2000 MG (500 MG,4 IN 1 D) ORAL
     Route: 048

REACTIONS (13)
  - WOUND DRAINAGE [None]
  - PYREXIA [None]
  - C-REACTIVE PROTEIN INCREASED [None]
  - ARTHRITIS BACTERIAL [None]
  - CLOSTRIDIUM DIFFICILE COLITIS [None]
  - ARTHRITIS REACTIVE [None]
  - NEUTROPHIL COUNT INCREASED [None]
  - ABNORMAL FAECES [None]
  - ABDOMINAL RIGIDITY [None]
  - HYPOTENSION [None]
  - EFFUSION [None]
  - DIARRHOEA [None]
  - GENERAL PHYSICAL HEALTH DETERIORATION [None]
